FAERS Safety Report 7777558-8 (Version None)
Quarter: 2011Q3

REPORT INFORMATION
  Report Type: 
  Country: None (occurrence: None)
  Receive Date: 20110926
  Receipt Date: 20110913
  Transmission Date: 20111222
  Serious: No
  Sender: FDA-Public Use
  Company Number: US-B.I. PHARMACEUTICALS,INC./RIDGEFIELD-2011-BP-22154BP

PATIENT
  Age: 73 Year
  Sex: Female

DRUGS (6)
  1. PRADAXA [Suspect]
     Indication: ATRIAL FIBRILLATION
     Dosage: 300 MG
     Route: 048
     Dates: start: 20110601
  2. VITAMIN B-12 [Concomitant]
     Indication: SUPPLEMENTATION THERAPY
  3. CALCIUM CARBONATE [Concomitant]
     Indication: SUPPLEMENTATION THERAPY
  4. NATURAL ESTROGEN [Concomitant]
     Indication: THYROID DISORDER
  5. LEVOTHYROXINE SODIUM [Concomitant]
     Indication: THYROID DISORDER
  6. ASCORBIC ACID [Concomitant]
     Indication: SUPPLEMENTATION THERAPY

REACTIONS (2)
  - ARTHRALGIA [None]
  - ABDOMINAL PAIN [None]
